FAERS Safety Report 9502072 (Version 3)
Quarter: 2014Q1

REPORT INFORMATION
  Report Type: Spontaneous
  Country: US (occurrence: US)
  Receive Date: 20130905
  Receipt Date: 20140227
  Transmission Date: 20141002
  Serious: Yes (Other)
  Sender: FDA-Public Use
  Company Number: US-BIOMARINAP-US-2013-101433

PATIENT
  Age: 21 Year
  Sex: Male
  Weight: 36.2 kg

DRUGS (6)
  1. ALDURAZYME [Suspect]
     Indication: MUCOPOLYSACCHARIDOSIS I
     Dosage: 20.3 MG, QW
     Route: 042
     Dates: start: 20060713
  2. TYLENOL                            /00020001/ [Concomitant]
     Indication: PREMEDICATION
     Dosage: UNK
     Dates: start: 20130713
  3. BENADRYL                           /00000402/ [Concomitant]
     Indication: PREMEDICATION
     Dosage: UNK
     Dates: start: 20130713
  4. ALBUTEROL HFA [Concomitant]
     Indication: ASTHMA
  5. ADVAIR [Concomitant]
     Indication: PRODUCT USED FOR UNKNOWN INDICATION
  6. MIRALAX                            /00754501/ [Concomitant]
     Indication: CONSTIPATION
     Dosage: UNK
     Dates: start: 20130713

REACTIONS (1)
  - Blood pressure decreased [Recovered/Resolved]
